FAERS Safety Report 18651176 (Version 1)
Quarter: 2020Q4

REPORT INFORMATION
  Report Type: Spontaneous
  Country: US (occurrence: US)
  Receive Date: 20201222
  Receipt Date: 20201222
  Transmission Date: 20210114
  Serious: No
  Sender: FDA-Public Use
  Company Number: US-CELGENEUS-USA-20201206298

PATIENT
  Sex: Female

DRUGS (8)
  1. THALOMID [Suspect]
     Active Substance: THALIDOMIDE
     Dosage: 50 MILLIGRAM
     Route: 048
     Dates: start: 202008
  2. THALOMID [Suspect]
     Active Substance: THALIDOMIDE
     Dosage: 100-400 MILLIGRAM
     Route: 048
     Dates: start: 201506
  3. THALOMID [Suspect]
     Active Substance: THALIDOMIDE
     Dosage: 400-300 MILLIGRAM
     Route: 048
     Dates: start: 201403
  4. THALOMID [Suspect]
     Active Substance: THALIDOMIDE
     Dosage: 350-300 MILLIGRAM
     Route: 048
     Dates: start: 201707
  5. THALOMID [Suspect]
     Active Substance: THALIDOMIDE
     Dosage: 300-100 MILLIGRAM
     Route: 048
     Dates: start: 201206
  6. THALOMID [Suspect]
     Active Substance: THALIDOMIDE
     Dosage: 250-200 MILLIGRAM
     Route: 048
     Dates: start: 201905
  7. THALOMID [Suspect]
     Active Substance: THALIDOMIDE
     Indication: LEPROSY
     Dosage: 100 MILLIGRAM
     Route: 048
     Dates: start: 201201
  8. THALOMID [Suspect]
     Active Substance: THALIDOMIDE
     Dosage: 150-100 MILLIGRAM
     Route: 048
     Dates: start: 201911

REACTIONS (1)
  - Limb discomfort [Unknown]
